FAERS Safety Report 6812241-4 (Version None)
Quarter: 2010Q3

REPORT INFORMATION
  Report Type: 
  Country: None (occurrence: None)
  Receive Date: 20100701
  Receipt Date: 20100622
  Transmission Date: 20110219
  Serious: Yes (Hospitalization)
  Sender: FDA-Public Use
  Company Number: JP-ASTRAZENECA-2010SE25770

PATIENT
  Age: 62 Year
  Sex: Male
  Weight: 66 kg

DRUGS (11)
  1. CRESTOR [Suspect]
     Indication: HYPERLIPIDAEMIA
     Route: 048
     Dates: start: 20100324, end: 20100428
  2. OMEPRAL [Suspect]
     Indication: REFLUX OESOPHAGITIS
     Route: 048
     Dates: start: 20100323, end: 20100428
  3. ALOSITOL [Suspect]
     Indication: HYPERURICAEMIA
     Route: 048
     Dates: start: 20100409, end: 20100428
  4. OLMETEC [Suspect]
     Indication: HYPERTENSION
     Route: 048
     Dates: start: 20100323, end: 20100428
  5. BUFFERIN [Suspect]
     Indication: CEREBRAL INFARCTION
     Dosage: DAILY
     Route: 048
     Dates: start: 20100331, end: 20100428
  6. CONIEL [Suspect]
     Indication: HYPERTENSION
     Route: 048
     Dates: start: 20100331, end: 20100428
  7. MUCOSTA [Suspect]
     Indication: GASTRITIS
     Route: 048
     Dates: start: 20100331, end: 20100428
  8. THYRADIN-S POWDER [Concomitant]
     Indication: HYPOTHYROIDISM
     Route: 048
     Dates: start: 20100319
  9. LASIX [Concomitant]
     Indication: OEDEMA
     Route: 048
     Dates: start: 20100319, end: 20100428
  10. ASPARA POTASSIUM [Concomitant]
     Indication: HYPOKALAEMIA
     Route: 048
     Dates: start: 20100323, end: 20100428
  11. ALDACTONE [Concomitant]
     Indication: OEDEMA
     Route: 048
     Dates: start: 20100324, end: 20100428

REACTIONS (1)
  - STEVENS-JOHNSON SYNDROME [None]
